FAERS Safety Report 9788511 (Version 1)
Quarter: 2013Q4

REPORT INFORMATION
  Report Type: Spontaneous
  Country: JP (occurrence: JP)
  Receive Date: 20131230
  Receipt Date: 20131230
  Transmission Date: 20140711
  Serious: Yes (Death, Other)
  Sender: FDA-Public Use
  Company Number: PHHY2013JP152331

PATIENT
  Age: 66 Year
  Sex: Female

DRUGS (3)
  1. CICLOSPORIN [Suspect]
     Indication: PYODERMA GANGRENOSUM
     Route: 048
  2. CICLOSPORIN [Suspect]
     Indication: OFF LABEL USE
  3. PREDNISOLONE [Suspect]
     Indication: PYODERMA GANGRENOSUM

REACTIONS (3)
  - Septic shock [Fatal]
  - Pyelonephritis [Unknown]
  - Cytomegalovirus infection [Unknown]
